FAERS Safety Report 5297286-0 (Version None)
Quarter: 2007Q2

REPORT INFORMATION
  Report Type: 
  Country: None (occurrence: None)
  Receive Date: 20070416
  Receipt Date: 20070410
  Transmission Date: 20071010
  Serious: Yes (Other)
  Sender: FDA-Public Use
  Company Number: JP-JNJFOC-20070400864

PATIENT
  Sex: Female
  Weight: 53 kg

DRUGS (15)
  1. INFLIXIMAB [Suspect]
     Dosage: DOSE WAS 3 MG/KG, 6 MG/KG, OR 10MG/KG
     Route: 042
  2. INFLIXIMAB [Suspect]
     Dosage: DOSE WAS 3 MG/KG, 6 MG/KG OR 10 MG/KG
     Route: 042
  3. INFLIXIMAB [Suspect]
     Route: 042
  4. INFLIXIMAB [Suspect]
     Route: 042
  5. INFLIXIMAB [Suspect]
     Indication: RHEUMATOID ARTHRITIS
     Route: 042
  6. METHOTREXATE [Suspect]
     Route: 048
  7. METHOTREXATE [Suspect]
     Indication: RHEUMATOID ARTHRITIS
     Route: 048
  8. PREDONINE [Suspect]
     Route: 048
  9. PREDONINE [Suspect]
     Route: 048
  10. PREDONINE [Suspect]
     Indication: RHEUMATOID ARTHRITIS
     Route: 048
  11. HYPEN [Concomitant]
     Indication: RHEUMATOID ARTHRITIS
     Route: 048
  12. VOLTAREN [Concomitant]
     Indication: RHEUMATOID ARTHRITIS
     Route: 048
  13. GASLON N [Concomitant]
     Indication: GASTROINTESTINAL DISORDER THERAPY
     Route: 048
  14. PARIET [Concomitant]
     Indication: GASTROINTESTINAL DISORDER THERAPY
     Route: 048
  15. GASTER D [Concomitant]
     Indication: GASTROINTESTINAL DISORDER THERAPY
     Route: 048

REACTIONS (1)
  - UTERINE CANCER [None]
